FAERS Safety Report 18620275 (Version 2)
Quarter: 2020Q4

REPORT INFORMATION
  Report Type: Spontaneous
  Country: US (occurrence: US)
  Receive Date: 20201215
  Receipt Date: 20201221
  Transmission Date: 20210114
  Serious: No
  Sender: FDA-Public Use
  Company Number: US-PFIZER INC-2020493093

PATIENT
  Age: 69 Year
  Sex: Female
  Weight: 53.97 kg

DRUGS (7)
  1. CLONAZEPAM. [Concomitant]
     Active Substance: CLONAZEPAM
     Indication: FIBROMYALGIA
  2. TEMAZEPAM. [Concomitant]
     Active Substance: TEMAZEPAM
     Indication: SLEEP DISORDER
     Dosage: 15MG
  3. CYTOMEL [Suspect]
     Active Substance: LIOTHYRONINE SODIUM
     Dosage: 5 UG
  4. LEVOTHYROXINE SODIUM. [Suspect]
     Active Substance: LEVOTHYROXINE SODIUM
     Dosage: UNK
     Dates: start: 20190624
  5. CLONAZEPAM. [Concomitant]
     Active Substance: CLONAZEPAM
     Indication: MUSCLE SPASMS
     Dosage: 2 MG
  6. TEMAZEPAM. [Concomitant]
     Active Substance: TEMAZEPAM
     Dosage: 30MG
  7. LOPRAZOLAM [Concomitant]
     Active Substance: LOPRAZOLAM
     Dosage: UNK

REACTIONS (20)
  - Nervousness [Unknown]
  - Gait disturbance [Unknown]
  - Pain [Unknown]
  - Eye disorder [Unknown]
  - Dry mouth [Unknown]
  - Insomnia [Unknown]
  - Memory impairment [Unknown]
  - Thinking abnormal [Unknown]
  - Impaired driving ability [Unknown]
  - Body height decreased [Unknown]
  - Wrong product administered [Unknown]
  - Tremor [Unknown]
  - Weight decreased [Unknown]
  - Decreased appetite [Unknown]
  - Taste disorder [Unknown]
  - Dry throat [Unknown]
  - Confusional state [Unknown]
  - Product dispensing error [Unknown]
  - Nausea [Unknown]
  - Mental disorder [Unknown]

NARRATIVE: CASE EVENT DATE: 2020
